FAERS Safety Report 17981359 (Version 2)
Quarter: 2020Q3

REPORT INFORMATION
  Report Type: Spontaneous
  Country: US (occurrence: US)
  Receive Date: 20200705
  Receipt Date: 20200814
  Transmission Date: 20201103
  Serious: No
  Sender: FDA-Public Use
  Company Number: US-ASTRAZENECA-2020SE83718

PATIENT
  Age: 60 Year
  Sex: Male
  Weight: 109.8 kg

DRUGS (8)
  1. METFORMIN [Concomitant]
     Active Substance: METFORMIN HYDROCHLORIDE
     Indication: BLOOD GLUCOSE FLUCTUATION
  2. LOVENOX [Concomitant]
     Active Substance: ENOXAPARIN SODIUM
     Indication: COAGULOPATHY
     Dosage: AS REQUIRED
  3. WARFARIN [Suspect]
     Active Substance: WARFARIN
     Indication: COAGULOPATHY
     Dosage: UNKNOWN, AS REQUIRED.
     Route: 065
  4. BASLAGAR [Concomitant]
     Indication: BLOOD GLUCOSE FLUCTUATION
     Route: 058
  5. BYDUREON BCISE [Suspect]
     Active Substance: EXENATIDE
     Indication: BLOOD GLUCOSE FLUCTUATION
     Route: 058
     Dates: start: 2018
  6. PRANDIAL INSULIN [Concomitant]
     Active Substance: INSULIN NOS
  7. HUMALOG [Concomitant]
     Active Substance: INSULIN LISPRO
     Indication: BLOOD GLUCOSE FLUCTUATION
     Route: 058
  8. GLYBERIDE [Concomitant]
     Indication: BLOOD GLUCOSE FLUCTUATION

REACTIONS (6)
  - Device malfunction [Unknown]
  - Haemorrhage [Unknown]
  - Blood glucose increased [Unknown]
  - Wrong technique in device usage process [Unknown]
  - Weight fluctuation [Unknown]
  - Prothrombin level abnormal [Unknown]

NARRATIVE: CASE EVENT DATE: 2018
